FAERS Safety Report 4534316-5 (Version None)
Quarter: 2004Q4

REPORT INFORMATION
  Report Type: 
  Country: None (occurrence: None)
  Receive Date: 20041221
  Receipt Date: 20041221
  Transmission Date: 20050328
  Serious: No
  Sender: FDA-Public Use
  Company Number: None

PATIENT
  Age: 28 Year
  Sex: Female
  Weight: 50 kg

DRUGS (2)
  1. AVELOX [Suspect]
     Indication: CHRONIC SINUSITIS
     Dosage: 400 MG PO BID
     Route: 048
  2. SUDAFED S.A. [Suspect]
     Dosage: 60 MG PO Q8H
     Route: 048

REACTIONS (1)
  - PALPITATIONS [None]
